FAERS Safety Report 16139802 (Version 3)
Quarter: 2019Q2

REPORT INFORMATION
  Report Type: Report from Study
  Country: US (occurrence: US)
  Receive Date: 20190401
  Receipt Date: 20190517
  Transmission Date: 20190711
  Serious: Yes (Hospitalization, Other)
  Sender: FDA-Public Use
  Company Number: US-ROCHE-2287645

PATIENT
  Sex: Female

DRUGS (6)
  1. ATEZOLIZUMAB. [Suspect]
     Active Substance: ATEZOLIZUMAB
     Indication: POORLY DIFFERENTIATED THYROID CARCINOMA
     Route: 042
     Dates: start: 20190305
  2. VEMURAFENIB. [Suspect]
     Active Substance: VEMURAFENIB
     Indication: POORLY DIFFERENTIATED THYROID CARCINOMA
     Route: 048
  3. COBIMETINIB. [Suspect]
     Active Substance: COBIMETINIB
     Indication: POORLY DIFFERENTIATED THYROID CARCINOMA
     Route: 048
     Dates: start: 20190318
  4. PACLITAXEL ALBUMIN [Suspect]
     Active Substance: PACLITAXEL
     Indication: POORLY DIFFERENTIATED THYROID CARCINOMA
     Route: 042
  5. BEVACIZUMAB. [Suspect]
     Active Substance: BEVACIZUMAB
     Indication: POORLY DIFFERENTIATED THYROID CARCINOMA
     Route: 042
  6. PACLITAXEL. [Suspect]
     Active Substance: PACLITAXEL
     Indication: POORLY DIFFERENTIATED THYROID CARCINOMA
     Route: 042

REACTIONS (4)
  - Hyponatraemia [Not Recovered/Not Resolved]
  - Renal tubular necrosis [Unknown]
  - Appendicitis [Recovered/Resolved]
  - Autoimmune disorder [Recovered/Resolved]

NARRATIVE: CASE EVENT DATE: 20190318
